FAERS Safety Report 7509870-1 (Version None)
Quarter: 2011Q2

REPORT INFORMATION
  Report Type: 
  Country: None (occurrence: None)
  Receive Date: 20110527
  Receipt Date: 20110520
  Transmission Date: 20111010
  Serious: Yes (Hospitalization)
  Sender: FDA-Public Use
  Company Number: B0722104A

PATIENT
  Age: 25 Year
  Sex: Female

DRUGS (4)
  1. MELATONIN [Suspect]
     Route: 065
  2. FLUOXETINE HCL [Suspect]
     Route: 065
  3. LAMICTAL [Suspect]
     Route: 065
     Dates: start: 20110101
  4. VALPROATE SODIUM [Suspect]
     Dosage: 900MG PER DAY
     Route: 065
     Dates: start: 20110101

REACTIONS (1)
  - RESPIRATORY FAILURE [None]
